FAERS Safety Report 5463601-8 (Version None)
Quarter: 2007Q3

REPORT INFORMATION
  Report Type: 
  Country: None (occurrence: None)
  Receive Date: 20070919
  Receipt Date: 20070830
  Transmission Date: 20080115
  Serious: Yes (Death)
  Sender: FDA-Public Use
  Company Number: 131

PATIENT
  Sex: Male

DRUGS (5)
  1. FAZACLO ODT [Suspect]
     Dosage: 400 MG  PO DAILY
     Route: 048
     Dates: start: 20061211, end: 20070528
  2. ARTANE [Concomitant]
  3. KLONOPIN WAFERS [Concomitant]
  4. PROLIXIN DECANOATE [Concomitant]
  5. RESTORIL [Concomitant]

REACTIONS (1)
  - DRUG TOXICITY [None]
